FAERS Safety Report 18119807 (Version 1)
Quarter: 2020Q3

REPORT INFORMATION
  Report Type: Spontaneous
  Country: US (occurrence: US)
  Receive Date: 20200806
  Receipt Date: 20200806
  Transmission Date: 20201103
  Serious: Yes (Other)
  Sender: FDA-Public Use
  Company Number: NVSC2020US216316

PATIENT
  Age: 59 Year
  Sex: Male

DRUGS (3)
  1. CEFTRIAXONE. [Suspect]
     Active Substance: CEFTRIAXONE
     Indication: PNEUMONIA BACTERIAL
     Dosage: UNK
     Route: 065
  2. VANCOMYCIN [Suspect]
     Active Substance: VANCOMYCIN
     Indication: PNEUMONIA BACTERIAL
     Dosage: UNK
     Route: 042
  3. CEFEPIME [Suspect]
     Active Substance: CEFEPIME HYDROCHLORIDE
     Indication: PNEUMONIA BACTERIAL
     Dosage: UNK
     Route: 042

REACTIONS (3)
  - Thrombocytopenia [Unknown]
  - Stevens-Johnson syndrome [Recovered/Resolved]
  - Transaminases increased [Recovered/Resolved]
